FAERS Safety Report 19055323 (Version 1)
Quarter: 2021Q1

REPORT INFORMATION
  Report Type: Spontaneous
  Country: JP (occurrence: JP)
  Receive Date: 20210325
  Receipt Date: 20210325
  Transmission Date: 20210420
  Serious: Yes (Other)
  Sender: FDA-Public Use
  Company Number: NVSJ2021JP004307

PATIENT
  Age: 70 Year
  Sex: Male

DRUGS (6)
  1. CYCLOSPORINE. [Suspect]
     Active Substance: CYCLOSPORINE
     Indication: PYOSTOMATITIS VEGETANS
  2. DIAPHENYLSULFONE [Concomitant]
     Active Substance: DAPSONE
     Indication: PYOSTOMATITIS VEGETANS
  3. MINOMYCIN [Concomitant]
     Active Substance: MINOCYCLINE HYDROCHLORIDE
     Indication: DERMATITIS
     Dosage: UNK
     Route: 048
  4. DIAPHENYLSULFONE [Concomitant]
     Active Substance: DAPSONE
     Indication: DERMATITIS
     Dosage: 75 MG/DAY
     Route: 048
  5. CYCLOSPORINE. [Suspect]
     Active Substance: CYCLOSPORINE
     Indication: DERMATITIS
     Dosage: UNK
     Route: 048
  6. MINOMYCIN [Concomitant]
     Active Substance: MINOCYCLINE HYDROCHLORIDE
     Indication: PYOSTOMATITIS VEGETANS

REACTIONS (6)
  - Oropharyngeal cobble stone mucosa [Unknown]
  - Pigmentation disorder [Unknown]
  - Skin plaque [Unknown]
  - Conjunctival erosion [Unknown]
  - Drug ineffective [Unknown]
  - Skin erosion [Recovering/Resolving]
